FAERS Safety Report 9313054 (Version 1)
Quarter: 2013Q2

REPORT INFORMATION
  Report Type: Report from Study
  Country: US (occurrence: US)
  Receive Date: 20130528
  Receipt Date: 20130528
  Transmission Date: 20140414
  Serious: No
  Sender: FDA-Public Use
  Company Number: US-ABBOTT-13P-163-1079311-00

PATIENT
  Sex: Male

DRUGS (3)
  1. ANDROGEL [Suspect]
     Indication: BLOOD TESTOSTERONE DECREASED
     Dates: end: 2012
  2. ANDROGEL [Suspect]
  3. ANDROGEL [Suspect]
     Dosage: 5 PUMPS DAILY
     Dates: start: 201303

REACTIONS (3)
  - Drug administration error [Unknown]
  - Depression [Recovered/Resolved]
  - Depression [Not Recovered/Not Resolved]
